FAERS Safety Report 6424558-6 (Version None)
Quarter: 2009Q4

REPORT INFORMATION
  Report Type: 
  Country: None (occurrence: None)
  Receive Date: 20091103
  Receipt Date: 20091019
  Transmission Date: 20100525
  Serious: Yes (Other)
  Sender: FDA-Public Use
  Company Number: PHHY2009FR46975

PATIENT
  Age: 8 Year
  Sex: Female

DRUGS (3)
  1. CARBAMAZEPINE [Suspect]
     Indication: PETIT MAL EPILEPSY
     Dosage: UNK
  2. ETHOSUXIMIDE [Suspect]
     Indication: PETIT MAL EPILEPSY
     Dosage: UNK
  3. ETHOSUXIMIDE [Suspect]
     Dosage: 1000 MG/DAY

REACTIONS (5)
  - ARTHRALGIA [None]
  - ARTHRITIS [None]
  - PETIT MAL EPILEPSY [None]
  - PYREXIA [None]
  - SYSTEMIC LUPUS ERYTHEMATOSUS [None]
